FAERS Safety Report 25417193 (Version 1)
Quarter: 2025Q2

REPORT INFORMATION
  Report Type: Spontaneous
  Country: CN (occurrence: CN)
  Receive Date: 20250610
  Receipt Date: 20250610
  Transmission Date: 20250716
  Serious: Yes (Life-Threatening, Hospitalization)
  Sender: COHERUS
  Company Number: CN-SHANGHAI JUNSHI BIOSCIENCES CO., LTD.-CN2025014403

PATIENT

DRUGS (8)
  1. TORIPALIMAB [Suspect]
     Active Substance: TORIPALIMAB
     Indication: Ovarian epithelial cancer
     Dosage: 240 MG, Q3WEEKS
     Route: 041
     Dates: start: 20250516, end: 20250516
  2. TORIPALIMAB [Suspect]
     Active Substance: TORIPALIMAB
     Indication: Metastatic neoplasm
  3. CARBOPLATIN [Suspect]
     Active Substance: CARBOPLATIN
     Indication: Ovarian epithelial cancer
     Dosage: 600 MG (D1), EVERY 21 DAYS, 2 CYCLES OF ADMINISTRATION
     Route: 041
  4. CARBOPLATIN [Suspect]
     Active Substance: CARBOPLATIN
     Indication: Metastatic neoplasm
     Dosage: 600 MG (D1), EVERY 21 DAYS
     Route: 041
     Dates: start: 20250516, end: 20250516
  5. PACLITAXEL [Suspect]
     Active Substance: PACLITAXEL
     Indication: Ovarian epithelial cancer
     Dosage: 270 MG (D1), EVERY 21 DAYS, 2 CYCLES OF ADMINISTRATION
     Route: 041
  6. PACLITAXEL [Suspect]
     Active Substance: PACLITAXEL
     Indication: Metastatic neoplasm
     Dosage: 270 MG (D1), EVERY 21 DAYS
     Route: 041
     Dates: start: 20250516, end: 20250516
  7. BEVACIZUMAB [Suspect]
     Active Substance: BEVACIZUMAB
     Indication: Ovarian epithelial cancer
     Route: 041
     Dates: start: 20250516, end: 20250516
  8. BEVACIZUMAB [Suspect]
     Active Substance: BEVACIZUMAB
     Indication: Metastatic neoplasm

REACTIONS (3)
  - Myelosuppression [Unknown]
  - Nausea [Unknown]
  - Vomiting [Unknown]

NARRATIVE: CASE EVENT DATE: 20250517
